FAERS Safety Report 6043269-2 (Version None)
Quarter: 2009Q1

REPORT INFORMATION
  Report Type: 
  Country: None (occurrence: None)
  Receive Date: 20090119
  Receipt Date: 20090112
  Transmission Date: 20090719
  Serious: Yes (Other)
  Sender: FDA-Public Use
  Company Number: US-PFIZER INC-2005055998

PATIENT
  Sex: Male
  Weight: 108.86 kg

DRUGS (8)
  1. ZYVOX [Suspect]
     Indication: STAPHYLOCOCCAL INFECTION
     Route: 048
     Dates: start: 20041010
  2. ZYVOX [Suspect]
     Route: 048
     Dates: start: 20050307
  3. LISINOPRIL [Concomitant]
     Indication: HYPERTENSION
     Route: 048
  4. PRAVASTATIN SODIUM [Concomitant]
     Indication: BLOOD CHOLESTEROL INCREASED
     Route: 048
  5. RANITIDINE [Concomitant]
     Route: 048
  6. LEVOTHYROXINE SODIUM [Concomitant]
     Indication: HYPOTHYROIDISM
     Route: 048
  7. INSULIN GLARGINE [Concomitant]
     Indication: DIABETES MELLITUS
     Route: 065
  8. INSULIN [Concomitant]
     Indication: DIABETES MELLITUS
     Route: 058

REACTIONS (4)
  - ABDOMINAL DISCOMFORT [None]
  - FACIAL PALSY [None]
  - INFECTION [None]
  - OROPHARYNGEAL BLISTERING [None]
